FAERS Safety Report 7368180-6 (Version None)
Quarter: 2011Q1

REPORT INFORMATION
  Report Type: 
  Country: None (occurrence: None)
  Receive Date: 20110323
  Receipt Date: 20110316
  Transmission Date: 20110831
  Serious: No
  Sender: FDA-Public Use
  Company Number: US-PFIZER INC-2011058675

PATIENT
  Sex: Female

DRUGS (2)
  1. ZOLOFT [Suspect]
     Indication: INSOMNIA
     Dosage: 25 MG, UNK
  2. ZOLOFT [Suspect]
     Indication: PANIC ATTACK

REACTIONS (3)
  - ANXIETY [None]
  - DIZZINESS [None]
  - DYSPNOEA [None]
